FAERS Safety Report 23106499 (Version 4)
Quarter: 2024Q2

REPORT INFORMATION
  Report Type: Spontaneous
  Country: US (occurrence: US)
  Receive Date: 20231025
  Receipt Date: 20240622
  Transmission Date: 20240717
  Serious: No
  Sender: FDA-Public Use
  Company Number: US-VIIV HEALTHCARE LIMITED-US2023AMR145558

PATIENT
  Age: 27 Year
  Sex: Male

DRUGS (7)
  1. RILPIVIRINE [Suspect]
     Active Substance: RILPIVIRINE
     Indication: HIV infection
     Dosage: UNK UNK, Q2M (600MG/900 MG EVERY 60 DAYS)
     Route: 030
     Dates: start: 20230703
  2. RILPIVIRINE [Suspect]
     Active Substance: RILPIVIRINE
     Dosage: UNK,0, 30 DAYS, 60 DAYS
     Route: 030
  3. RILPIVIRINE [Suspect]
     Active Substance: RILPIVIRINE
     Dosage: UNK,CABOTEGRAVIR 600MG, RILPIVIRINE
     Route: 030
  4. RILPIVIRINE [Suspect]
     Active Substance: RILPIVIRINE
     Dosage: UNK,CABOTEGRAVIR 600MG, RILPIVIRINE
     Route: 030
  5. CABOTEGRAVIR [Suspect]
     Active Substance: CABOTEGRAVIR
     Indication: HIV infection
     Dosage: UNK UNK, Q2M (600MG/900 MG EVERY 60 DAYS)
     Route: 030
     Dates: start: 20230713
  6. CABOTEGRAVIR [Suspect]
     Active Substance: CABOTEGRAVIR
     Dosage: UNK,0, 30 DAYS, 60 DAYS
     Route: 030
  7. CABOTEGRAVIR [Suspect]
     Active Substance: CABOTEGRAVIR
     Dosage: UNK,CABOTEGRAVIR 600MG, RILPIVIRINE
     Route: 030

REACTIONS (2)
  - Myalgia [Recovered/Resolved]
  - Injection site pain [Recovered/Resolved]

NARRATIVE: CASE EVENT DATE: 20230815
